FAERS Safety Report 5293505-5 (Version None)
Quarter: 2007Q2

REPORT INFORMATION
  Report Type: 
  Country: None (occurrence: None)
  Receive Date: 20070411
  Receipt Date: 20070406
  Transmission Date: 20071010
  Serious: Yes (Other)
  Sender: FDA-Public Use
  Company Number: US-GLAXOSMITHKLINE-A0646203A

PATIENT
  Age: 64 Year
  Sex: Female

DRUGS (12)
  1. ADVAIR DISKUS 100/50 [Suspect]
     Indication: CHRONIC OBSTRUCTIVE PULMONARY DISEASE
     Dosage: 1PUFF TWICE PER DAY
     Route: 055
     Dates: start: 20010704
  2. SPIRIVA [Concomitant]
  3. ALBUTEROL [Concomitant]
  4. ZYFLO [Concomitant]
  5. LEVOXYL [Concomitant]
  6. BUSPAR [Concomitant]
  7. TOPAMAX [Concomitant]
  8. PROVIGIL [Concomitant]
  9. LEXAPRO [Concomitant]
  10. VERAPAMIL [Concomitant]
  11. ASPIRIN [Concomitant]
  12. COQ-10 [Concomitant]

REACTIONS (2)
  - NEPHROLITHIASIS [None]
  - OSTEOPOROSIS [None]
